FAERS Safety Report 10074512 (Version 1)
Quarter: 2014Q2

REPORT INFORMATION
  Report Type: Spontaneous
  Country: US (occurrence: US)
  Receive Date: 20140411
  Receipt Date: 20140411
  Transmission Date: 20141212
  Serious: No
  Sender: FDA-Public Use
  Company Number: US-SA-2013SA117067

PATIENT
  Age: 65 Year
  Sex: Female
  Weight: 64 kg

DRUGS (6)
  1. ALLEGRA-D, 12 HR [Suspect]
     Dosage: 60/120 MG
     Route: 048
     Dates: start: 20131031, end: 20131108
  2. RESTASIS [Suspect]
  3. CELEBREX [Concomitant]
     Indication: OSTEOARTHRITIS
     Route: 065
  4. FLEXERIL [Concomitant]
     Route: 065
  5. NASONEX [Concomitant]
     Indication: NASAL CONGESTION
     Route: 065
  6. EVISTA [Concomitant]
     Indication: PROPHYLAXIS

REACTIONS (1)
  - Dry eye [Recovering/Resolving]
